FAERS Safety Report 5868186-X (Version None)
Quarter: 2008Q3

REPORT INFORMATION
  Report Type: 
  Country: None (occurrence: None)
  Receive Date: 20080902
  Receipt Date: 20080822
  Transmission Date: 20090109
  Serious: Yes (Hospitalization, Other)
  Sender: FDA-Public Use
  Company Number: FR-PFIZER INC-2008068184

PATIENT
  Sex: Female
  Weight: 59.7 kg

DRUGS (6)
  1. SU-011,248 [Suspect]
     Indication: NON-SMALL CELL LUNG CANCER METASTATIC
     Route: 048
     Dates: start: 20080715, end: 20080812
  2. RABEPRAZOLE SODIUM [Concomitant]
     Route: 048
  3. BISOPROLOL FUMARATE [Concomitant]
     Route: 048
  4. SODIUM ALGINATE [Concomitant]
     Route: 048
  5. DEXTROPROPOXYPHENE [Concomitant]
     Route: 048
  6. SODIUM BICARBONATE [Concomitant]
     Route: 048
     Dates: start: 20080731

REACTIONS (1)
  - URINARY TRACT INFECTION [None]
